FAERS Safety Report 19922837 (Version 1)
Quarter: 2021Q4

REPORT INFORMATION
  Report Type: Spontaneous
  Country: US (occurrence: US)
  Receive Date: 20211005
  Receipt Date: 20211005
  Transmission Date: 20220303
  Serious: Yes (Hospitalization, Other)
  Sender: FDA-Public Use
  Company Number: None

PATIENT
  Age: 58 Year
  Sex: Female
  Weight: 81 kg

DRUGS (1)
  1. KLONOPIN [Suspect]
     Active Substance: CLONAZEPAM

REACTIONS (7)
  - Drug withdrawal syndrome [None]
  - Weight decreased [None]
  - Asthenia [None]
  - Vibration test abnormal [None]
  - Tinnitus [None]
  - Insomnia [None]
  - Drug dependence [None]

NARRATIVE: CASE EVENT DATE: 20181026
